FAERS Safety Report 17902290 (Version 2)
Quarter: 2020Q2

REPORT INFORMATION
  Report Type: Report from Study
  Country: US (occurrence: US)
  Receive Date: 20200616
  Receipt Date: 20200622
  Transmission Date: 20200714
  Serious: Yes (Hospitalization)
  Sender: FDA-Public Use
  Company Number: US-AGIOS-2005US01899

PATIENT

DRUGS (1)
  1. TIBSOVO [Suspect]
     Active Substance: IVOSIDENIB
     Indication: ACUTE MYELOID LEUKAEMIA
     Dosage: 250MG, 2 TABLETS (500MG) DAILY
     Route: 048
     Dates: start: 20200310

REACTIONS (4)
  - Hospitalisation [Unknown]
  - Therapeutic product effect decreased [Unknown]
  - Anaemia [Unknown]
  - Product dose omission [Unknown]

NARRATIVE: CASE EVENT DATE: 20200604
